FAERS Safety Report 24762062 (Version 1)
Quarter: 2024Q4

REPORT INFORMATION
  Report Type: Spontaneous
  Country: US (occurrence: US)
  Receive Date: 20241221
  Receipt Date: 20241221
  Transmission Date: 20250114
  Serious: Yes (Death, Hospitalization, Other)
  Sender: ALEXION PHARMACEUTICALS
  Company Number: US-ASTRAZENECA-202412USA016400US

PATIENT
  Age: 26 Year

DRUGS (12)
  1. SEROQUEL [Suspect]
     Active Substance: QUETIAPINE FUMARATE
  2. SEROQUEL [Suspect]
     Active Substance: QUETIAPINE FUMARATE
     Route: 048
  3. SEROQUEL [Suspect]
     Active Substance: QUETIAPINE FUMARATE
  4. SEROQUEL [Suspect]
     Active Substance: QUETIAPINE FUMARATE
     Route: 048
  5. CITALOPRAM [Suspect]
     Active Substance: CITALOPRAM
     Route: 048
  6. CITALOPRAM [Suspect]
     Active Substance: CITALOPRAM
  7. BENZTROPINE [Suspect]
     Active Substance: BENZTROPINE
     Route: 048
  8. BENZTROPINE [Suspect]
     Active Substance: BENZTROPINE
  9. BUSPIRONE [Suspect]
     Active Substance: BUSPIRONE HYDROCHLORIDE
     Route: 048
  10. BUSPIRONE [Suspect]
     Active Substance: BUSPIRONE HYDROCHLORIDE
  11. ESZOPICLONE [Suspect]
     Active Substance: ESZOPICLONE
     Route: 048
  12. ESZOPICLONE [Suspect]
     Active Substance: ESZOPICLONE

REACTIONS (2)
  - Toxicity to various agents [Fatal]
  - Completed suicide [Fatal]
